FAERS Safety Report 14528340 (Version 1)
Quarter: 2018Q1

REPORT INFORMATION
  Report Type: Spontaneous
  Country: GB (occurrence: GB)
  Receive Date: 20180214
  Receipt Date: 20180214
  Transmission Date: 20180509
  Serious: Yes (Hospitalization)
  Sender: FDA-Public Use
  Company Number: GB-ASTRAZENECA-2018SE16772

PATIENT
  Age: 87 Year
  Sex: Female

DRUGS (2)
  1. ATORVASTATIN [Concomitant]
     Active Substance: ATORVASTATIN
  2. OMEPRAZOLE. [Suspect]
     Active Substance: OMEPRAZOLE
     Indication: DYSPEPSIA
     Route: 048
     Dates: start: 201710, end: 2017

REACTIONS (4)
  - Balance disorder [Unknown]
  - Depressed level of consciousness [Unknown]
  - Memory impairment [Recovering/Resolving]
  - Speech disorder [Recovered/Resolved]
